FAERS Safety Report 15842030 (Version 2)
Quarter: 2019Q1

REPORT INFORMATION
  Report Type: Spontaneous
  Country: US (occurrence: US)
  Receive Date: 20190118
  Receipt Date: 20190129
  Transmission Date: 20190417
  Serious: Yes (Other)
  Sender: FDA-Public Use
  Company Number: US-ASTRAZENECA-2018SF25602

PATIENT
  Age: 19507 Day
  Sex: Male

DRUGS (19)
  1. NEXIUM [Suspect]
     Active Substance: ESOMEPRAZOLE MAGNESIUM
     Route: 048
     Dates: start: 20150921
  2. PRILOSEC [Suspect]
     Active Substance: OMEPRAZOLE MAGNESIUM
     Route: 048
     Dates: start: 199409, end: 201603
  3. FLUTICASONE. [Concomitant]
     Active Substance: FLUTICASONE
  4. ASPIRIN. [Concomitant]
     Active Substance: ASPIRIN
  5. NEXIUM [Suspect]
     Active Substance: ESOMEPRAZOLE MAGNESIUM
     Route: 048
     Dates: start: 199409, end: 201603
  6. DEXILANT [Suspect]
     Active Substance: DEXLANSOPRAZOLE
     Route: 065
     Dates: start: 199409, end: 201603
  7. FLUTICASONE. [Concomitant]
     Active Substance: FLUTICASONE
  8. DEXILANT [Suspect]
     Active Substance: DEXLANSOPRAZOLE
     Dosage: 60.0MG UNKNOWN
     Route: 048
  9. LISINOPRIL. [Concomitant]
     Active Substance: LISINOPRIL
  10. METFORMIN [Concomitant]
     Active Substance: METFORMIN HYDROCHLORIDE
  11. LYRICA [Concomitant]
     Active Substance: PREGABALIN
  12. PRILOSEC [Suspect]
     Active Substance: OMEPRAZOLE MAGNESIUM
     Route: 048
     Dates: start: 19941004
  13. VITAMIN D [Concomitant]
     Active Substance: CHOLECALCIFEROL
  14. ATORVASTATIN [Concomitant]
     Active Substance: ATORVASTATIN
  15. NEXIUM [Suspect]
     Active Substance: ESOMEPRAZOLE MAGNESIUM
     Route: 048
     Dates: start: 20171018
  16. HUMALOG [Concomitant]
     Active Substance: INSULIN LISPRO
  17. FUROSEMIDE. [Concomitant]
     Active Substance: FUROSEMIDE
  18. ATORVASTATIN [Concomitant]
     Active Substance: ATORVASTATIN
  19. CETRIZINE [Concomitant]
     Active Substance: CETIRIZINE HYDROCHLORIDE

REACTIONS (4)
  - Renal failure [Unknown]
  - Chronic kidney disease [Unknown]
  - End stage renal disease [Unknown]
  - Hyperparathyroidism secondary [Unknown]

NARRATIVE: CASE EVENT DATE: 20171018
